FAERS Safety Report 10549520 (Version 1)
Quarter: 2014Q4

REPORT INFORMATION
  Report Type: Spontaneous
  Country: US (occurrence: None)
  Receive Date: 20141020
  Receipt Date: 20141020
  Transmission Date: 20150529
  Serious: No
  Sender: FDA-Public Use
  Company Number: AEGR000592

PATIENT
  Age: 47 Year
  Sex: Male

DRUGS (34)
  1. OXYCODONE [Concomitant]
     Active Substance: OXYCODONE
  2. BUMEX (BUMETANIDE) [Concomitant]
  3. PLAVIX (CLOPIDOGREL BISULFATE) [Concomitant]
  4. VITAMIN E (TOCOPHERYL ACETATE) [Concomitant]
  5. GABAPENTIN. [Concomitant]
     Active Substance: GABAPENTIN
  6. CYMBALTA [Concomitant]
     Active Substance: DULOXETINE HYDROCHLORIDE
  7. LIPITOR [Concomitant]
     Active Substance: ATORVASTATIN CALCIUM
  8. LANTUS [Concomitant]
     Active Substance: INSULIN GLARGINE
  9. NOVOLOG [Concomitant]
     Active Substance: INSULIN ASPART
  10. VITAMIN D (ERGOCALCIFEROL) [Concomitant]
     Active Substance: ERGOCALCIFEROL
  11. ASPIRIN (ACETYLSALICYLIC ACID) [Concomitant]
     Active Substance: ASPIRIN
  12. AZOR (AMLODIPINE BESILATE, OLMESARTAN MEDOXOMIL) [Concomitant]
  13. OMEPRAZOLE. [Concomitant]
     Active Substance: OMEPRAZOLE
  14. BIDIL (HYDRALAZINE HYDROCHLORIDE, ISOSORBIDE DINITRATE) [Concomitant]
  15. CARVEDILOL. [Concomitant]
     Active Substance: CARVEDILOL
  16. NIASPAN ER (NICOTINIC ACID) [Concomitant]
  17. METHYLPHENIDATE (METHYLPHENIDATE HYDROCHLORIDE) [Concomitant]
  18. MORPHINE SULFATE. [Concomitant]
     Active Substance: MORPHINE SULFATE
  19. NITRO BID (GLYCERYL TRINITRATE) [Concomitant]
  20. COMBIVENT (IPRATROPIUM BROMIDE, SALBUTAMOL SULFATE) [Concomitant]
  21. CRESTOR [Concomitant]
     Active Substance: ROSUVASTATIN CALCIUM
  22. ZETIA [Concomitant]
     Active Substance: EZETIMIBE
  23. RANEXA (RANOLAZINE) [Concomitant]
  24. RANITIDINE [Concomitant]
     Active Substance: RANITIDINE\RANITIDINE HYDROCHLORIDE
  25. OMEGA 3 6 9 (OMEGA 9 FATTY ACIDS, OMEGA-3 FATTY ACIDS, OMEGA-6 FATTY ACIDS) [Concomitant]
  26. MUCOMYST (ACETYLCYSTEINE) [Concomitant]
  27. CLONAZEPAM. [Concomitant]
     Active Substance: CLONAZEPAM
  28. NORVASC [Concomitant]
     Active Substance: AMLODIPINE BESYLATE
  29. CLONIDINE. [Concomitant]
     Active Substance: CLONIDINE
  30. GLUCOSE [Concomitant]
     Active Substance: DEXTROSE
  31. JUXTAPID [Suspect]
     Active Substance: LOMITAPIDE MESYLATE
     Indication: TYPE IIA HYPERLIPIDAEMIA
     Route: 048
     Dates: start: 20131113, end: 20140221
  32. EFFIENT (PRASUGREL HYDROCHLORIDE) [Concomitant]
  33. TRENTAL (PENTOXIFYLLINE) [Concomitant]
  34. COUMADIN [Concomitant]
     Active Substance: WARFARIN SODIUM

REACTIONS (10)
  - Abdominal pain upper [None]
  - Dyspnoea [None]
  - Vision blurred [None]
  - Chest pain [None]
  - Vomiting [None]
  - Oedema peripheral [None]
  - Diarrhoea [None]
  - Nausea [None]
  - Abdominal pain [None]
  - Flatulence [None]

NARRATIVE: CASE EVENT DATE: 20140319
